FAERS Safety Report 8269904-6 (Version None)
Quarter: 2012Q2

REPORT INFORMATION
  Report Type: 
  Country: None (occurrence: None)
  Receive Date: 20120410
  Receipt Date: 20120404
  Transmission Date: 20120825
  Serious: No
  Sender: FDA-Public Use
  Company Number: US-PFIZER INC-2012086332

PATIENT
  Sex: Female

DRUGS (2)
  1. EFFEXOR XR [Suspect]
     Indication: CRANIOCEREBRAL INJURY
     Dosage: 300 MG
  2. EFFEXOR XR [Suspect]
     Dosage: 75 MG, 1X/DAY

REACTIONS (1)
  - HEADACHE [None]
